FAERS Safety Report 16646027 (Version 1)
Quarter: 2019Q3

REPORT INFORMATION
  Report Type: Spontaneous
  Country: NL (occurrence: NL)
  Receive Date: 20190730
  Receipt Date: 20190730
  Transmission Date: 20191004
  Serious: Yes (Hospitalization, Other)
  Sender: FDA-Public Use
  Company Number: NL-AUROBINDO-AUR-APL-2018-048807

PATIENT

DRUGS (18)
  1. CICLOSPORINE [Interacting]
     Active Substance: CYCLOSPORINE
     Indication: CHRONIC GRAFT VERSUS HOST DISEASE
     Dosage: UNK, GRADUALLY DECREASED BECAUSE OF GVHD
     Route: 065
     Dates: start: 2012, end: 2012
  2. CICLOSPORINE [Interacting]
     Active Substance: CYCLOSPORINE
     Dosage: 75 MILLIGRAM, ONCE A DAY
     Route: 065
     Dates: start: 201204, end: 2012
  3. CICLOSPORINE [Interacting]
     Active Substance: CYCLOSPORINE
     Dosage: 75 MG, BID
     Route: 065
     Dates: start: 201305, end: 2016
  4. CICLOSPORINE [Interacting]
     Active Substance: CYCLOSPORINE
     Dosage: 100 MG, BID
     Route: 065
     Dates: start: 2016
  5. VORICONAZOLE. [Suspect]
     Active Substance: VORICONAZOLE
     Indication: BRONCHOPULMONARY ASPERGILLOSIS
     Dosage: 400 MILLIGRAM, ONCE A DAY (200 MG BID)
     Route: 065
     Dates: start: 201602, end: 201603
  6. CICLOSPORINE [Interacting]
     Active Substance: CYCLOSPORINE
     Dosage: 50 MILLIGRAM, ONCE A DAY
     Route: 065
     Dates: start: 201209
  7. VORICONAZOLE. [Interacting]
     Active Substance: VORICONAZOLE
     Dosage: 150 MILLIGRAM, ONCE A DAY (75MG BID))
     Route: 065
     Dates: start: 2016
  8. SIMVASTATIN FILM-COATED TABLET [Interacting]
     Active Substance: SIMVASTATIN
     Dosage: 40 MILLIGRAM, ONCE A DAY
     Route: 048
     Dates: start: 201503, end: 201603
  9. ACETYLSALICYLIC ACID [Concomitant]
     Active Substance: ASPIRIN
     Indication: PERCUTANEOUS CORONARY INTERVENTION
     Dosage: UNK
     Route: 065
     Dates: start: 201503
  10. CLOPIDOGREL [Concomitant]
     Active Substance: CLOPIDOGREL BISULFATE
     Indication: PERCUTANEOUS CORONARY INTERVENTION
     Dosage: UNK
     Route: 065
     Dates: start: 201503
  11. CICLOSPORINE [Interacting]
     Active Substance: CYCLOSPORINE
     Dosage: 450 MILLIGRAM, ONCE A DAY
     Route: 065
     Dates: start: 201209, end: 2012
  12. CICLOSPORINE [Interacting]
     Active Substance: CYCLOSPORINE
     Dosage: 100 MILLIGRAM, ONCE A DAY
     Route: 065
     Dates: start: 2016
  13. SIMVASTATIN FILM-COATED TABLET [Interacting]
     Active Substance: SIMVASTATIN
     Indication: PERCUTANEOUS CORONARY INTERVENTION
     Dosage: UNK, ONCE A DAY
     Route: 065
  14. PREDNISON [Concomitant]
     Active Substance: PREDNISONE
     Indication: PRODUCT USED FOR UNKNOWN INDICATION
     Dosage: UNK
     Route: 065
     Dates: start: 201209
  15. CICLOSPORINE [Interacting]
     Active Substance: CYCLOSPORINE
     Indication: GRAFT VERSUS HOST DISEASE IN LUNG
     Dosage: UNK
     Route: 065
     Dates: start: 201204, end: 2012
  16. CICLOSPORINE [Interacting]
     Active Substance: CYCLOSPORINE
     Dosage: 25 MILLIGRAM, ONCE A DAY
     Route: 065
     Dates: start: 201209, end: 201209
  17. CICLOSPORINE [Interacting]
     Active Substance: CYCLOSPORINE
     Dosage: 25 MILLIGRAM, ONCE A DAY
     Route: 065
     Dates: start: 201208, end: 201209
  18. VORICONAZOLE. [Interacting]
     Active Substance: VORICONAZOLE
     Dosage: 150 MILLIGRAM, ONCE A DAY
     Route: 065
     Dates: start: 201602, end: 201603

REACTIONS (7)
  - Chromaturia [Unknown]
  - Product use in unapproved indication [Unknown]
  - Gait disturbance [Recovered/Resolved]
  - Drug interaction [Recovered/Resolved]
  - Rhabdomyolysis [Recovered/Resolved]
  - Myalgia [Recovered/Resolved]
  - Bronchopulmonary aspergillosis [Unknown]

NARRATIVE: CASE EVENT DATE: 2016
